FAERS Safety Report 26201581 (Version 1)
Quarter: 2025Q4

REPORT INFORMATION
  Report Type: Spontaneous
  Country: EU (occurrence: EU)
  Receive Date: 20251226
  Receipt Date: 20251226
  Transmission Date: 20260118
  Serious: Yes (Hospitalization)
  Sender: ROCHE
  Company Number: None

PATIENT
  Age: 71 Year
  Sex: Female
  Weight: 62.5 kg

DRUGS (19)
  1. TECENTRIQ [Suspect]
     Active Substance: ATEZOLIZUMAB
     Indication: Neuroendocrine carcinoma
     Route: 042
     Dates: start: 20250905, end: 20250929
  2. CARBOPLATIN [Suspect]
     Active Substance: CARBOPLATIN
     Indication: Neuroendocrine carcinoma
     Route: 042
     Dates: start: 20250905, end: 20250929
  3. ETOPOSIDE [Suspect]
     Active Substance: ETOPOSIDE
     Indication: Neuroendocrine carcinoma
     Route: 042
     Dates: start: 20250905, end: 20250929
  4. ONDANSETRON [Concomitant]
     Active Substance: ONDANSETRON
  5. METOCLOPRAMIDE [Concomitant]
     Active Substance: METOCLOPRAMIDE
  6. FERINJECT [Concomitant]
     Active Substance: FERRIC CARBOXYMALTOSE
  7. XGEVA [Concomitant]
     Active Substance: DENOSUMAB
  8. TICAGRELOR [Concomitant]
     Active Substance: TICAGRELOR
  9. KARDEGIC [Concomitant]
     Active Substance: ASPIRIN DL-LYSINE
  10. AMLODIPINE [Concomitant]
     Active Substance: AMLODIPINE BESYLATE
  11. PROPRANOLOL [Concomitant]
     Active Substance: PROPRANOLOL HYDROCHLORIDE
  12. ASPIRIN [Concomitant]
     Active Substance: ASPIRIN
  13. INDAPAMIDE [Concomitant]
     Active Substance: INDAPAMIDE
  14. GLICLAZIDE [Concomitant]
     Active Substance: GLICLAZIDE
  15. METFORMIN HYDROCHLORIDE [Concomitant]
     Active Substance: METFORMIN HYDROCHLORIDE
  16. EZETIMIBE [Concomitant]
     Active Substance: EZETIMIBE
  17. ATORVASTATIN [Concomitant]
     Active Substance: ATORVASTATIN
  18. FLUOXETINE HYDROCHLORIDE [Concomitant]
     Active Substance: FLUOXETINE HYDROCHLORIDE
  19. ALPRAZOLAM [Concomitant]
     Active Substance: ALPRAZOLAM

REACTIONS (3)
  - Diarrhoea [Recovered/Resolved]
  - Cholestatic liver injury [Recovered/Resolved]
  - Catheter site thrombosis [Recovered/Resolved]

NARRATIVE: CASE EVENT DATE: 20250930
